FAERS Safety Report 8314627-8 (Version None)
Quarter: 2012Q2

REPORT INFORMATION
  Report Type: 
  Country: None (occurrence: None)
  Receive Date: 20120426
  Receipt Date: 20120424
  Transmission Date: 20120825
  Serious: No
  Sender: FDA-Public Use
  Company Number: US-TEVA-333591USA

PATIENT
  Sex: Female
  Weight: 49.94 kg

DRUGS (3)
  1. VYVANSE [Suspect]
     Indication: ATTENTION DEFICIT/HYPERACTIVITY DISORDER
  2. PLAN B ONE-STEP [Suspect]
     Indication: POST COITAL CONTRACEPTION
     Dosage: 1.5 MILLIGRAM;
     Route: 048
     Dates: start: 20120415, end: 20120415
  3. TETRACYCLINE [Concomitant]
     Indication: ACNE
     Dosage: 115 MILLIGRAM;

REACTIONS (3)
  - TREMOR [None]
  - FEELING HOT [None]
  - DIZZINESS [None]
